FAERS Safety Report 17860196 (Version 1)
Quarter: 2020Q2

REPORT INFORMATION
  Report Type: Spontaneous
  Country: US (occurrence: US)
  Receive Date: 20200604
  Receipt Date: 20200604
  Transmission Date: 20200714
  Serious: Yes (Death, Life-Threatening, Hospitalization, Other)
  Sender: FDA-Public Use
  Company Number: US-MACLEODS PHARMACEUTICALS US LTD-MAC2020026661

PATIENT

DRUGS (3)
  1. TAMSULOSIN 0.4 MG [Suspect]
     Active Substance: TAMSULOSIN
     Indication: SUICIDE ATTEMPT
     Dosage: 30 DOSAGE FORM, SINGLE TABLET
     Route: 048
  2. GENVOYA 150 MG/150 MG/200 MG/10 MG [Concomitant]
     Indication: SUICIDE ATTEMPT
     Dosage: 30 DOSAGE FORM, SINGLE
     Route: 048
  3. PREZISTA [Concomitant]
     Active Substance: DARUNAVIR ETHANOLATE
     Indication: SUICIDE ATTEMPT
     Dosage: 30 MILLIGRAM, SINGLE
     Route: 048

REACTIONS (8)
  - Pulseless electrical activity [Fatal]
  - Blood pressure decreased [Fatal]
  - Mental status changes [Unknown]
  - Haemodynamic instability [Unknown]
  - Bundle branch block right [Fatal]
  - Toxicity to various agents [Fatal]
  - Overdose [Fatal]
  - Cardiac arrest [Fatal]
